FAERS Safety Report 4977556-3 (Version None)
Quarter: 2006Q2

REPORT INFORMATION
  Report Type: 
  Country: None (occurrence: None)
  Receive Date: 20060420
  Receipt Date: 20060412
  Transmission Date: 20061013
  Serious: Yes (Hospitalization)
  Sender: FDA-Public Use
  Company Number: US-JNJFOC-20060403555

PATIENT
  Sex: Female
  Weight: 155.13 kg

DRUGS (8)
  1. FENTANYL TRANSDERMAL SYSTEM [Suspect]
     Route: 062
  2. FENTANYL TRANSDERMAL SYSTEM [Suspect]
     Route: 062
  3. FENTANYL TRANSDERMAL SYSTEM [Suspect]
     Route: 062
  4. ENALAPRIL MALEATE [Concomitant]
     Route: 048
  5. CLONIDINE [Concomitant]
     Dosage: 6 MG AT NIGHT, ORAL
     Route: 048
  6. CLONIDINE [Concomitant]
     Route: 062
  7. ALBUTEROL [Concomitant]
     Indication: ASTHMA
     Dosage: 2 PUFFS, AS NEEDED, INHALATION
     Route: 055
  8. LORAZEPAM [Concomitant]
     Indication: SLEEP DISORDER THERAPY
     Dosage: 1 MG AT NIGHT, ORAL
     Route: 048

REACTIONS (5)
  - ASTHENIA [None]
  - DIPLEGIA [None]
  - DRUG INEFFECTIVE [None]
  - NERVE COMPRESSION [None]
  - SHOULDER PAIN [None]
